FAERS Safety Report 21528921 (Version 4)
Quarter: 2022Q4

REPORT INFORMATION
  Report Type: Spontaneous
  Country: US (occurrence: US)
  Receive Date: 20221031
  Receipt Date: 20221209
  Transmission Date: 20230112
  Serious: Yes (Hospitalization)
  Sender: FDA-Public Use
  Company Number: US-BIOVITRUM-2022US12472

PATIENT
  Age: 0 Year
  Sex: Female
  Weight: 9 kg

DRUGS (5)
  1. SYNAGIS [Suspect]
     Active Substance: PALIVIZUMAB
     Indication: Bronchiolitis
     Dates: start: 20221028
  2. SYNAGIS [Suspect]
     Active Substance: PALIVIZUMAB
     Indication: Laryngomalacia
  3. SYNAGIS [Suspect]
     Active Substance: PALIVIZUMAB
     Indication: Respiratory syncytial virus infection
  4. SYNAGIS [Suspect]
     Active Substance: PALIVIZUMAB
     Indication: Premature baby
  5. SYNAGIS [Suspect]
     Active Substance: PALIVIZUMAB
     Indication: Low birth weight baby

REACTIONS (6)
  - Rhinovirus infection [Recovering/Resolving]
  - Respiratory syncytial virus infection [Unknown]
  - Contusion [Not Recovered/Not Resolved]
  - Rales [Unknown]
  - Unevaluable event [Unknown]
  - Wrong technique in product usage process [Unknown]

NARRATIVE: CASE EVENT DATE: 20221101
